FAERS Safety Report 17825228 (Version 3)
Quarter: 2020Q3

REPORT INFORMATION
  Report Type: Report from Study
  Country: JP (occurrence: JP)
  Receive Date: 20200526
  Receipt Date: 20200716
  Transmission Date: 20201102
  Serious: Yes (Hospitalization)
  Sender: FDA-Public Use
  Company Number: JP-EISAI MEDICAL RESEARCH-EC-2020-075008

PATIENT
  Age: 75 Year
  Sex: Female
  Weight: 37 kg

DRUGS (21)
  1. LOXOPROFEN SODIUM HYDRATE [Concomitant]
     Active Substance: LOXOPROFEN SODIUM DIHYDRATE
     Indication: BACK PAIN
     Dates: start: 201909
  2. HOCHUEKKITO [Concomitant]
     Active Substance: HERBALS
     Indication: DECREASED APPETITE
     Dates: start: 2016
  3. GLYCERIN. [Concomitant]
     Active Substance: GLYCERIN
     Indication: STOMATITIS
     Dosage: GARGLE
     Dates: start: 20200520
  4. GASCON [Concomitant]
     Active Substance: DIMETHICONE
     Indication: DYSBIOSIS
     Dates: start: 202001
  5. TSUMURA SHAKUYAKUKANZOTO EXTRACT GRANULES FOR ETHICAL USE [Concomitant]
     Indication: MUSCLE RIGIDITY
     Dates: start: 2018
  6. SM [Concomitant]
     Indication: DYSPEPSIA
     Dates: start: 20200325
  7. LOPERAMIDE HYDROCHLORIDE. [Concomitant]
     Active Substance: LOPERAMIDE HYDROCHLORIDE
     Indication: DIARRHOEA
     Dates: start: 2019
  8. CAMOSTAT MESILATE [Concomitant]
     Active Substance: CAMOSTAT MESYLATE
     Indication: GASTROOESOPHAGEAL REFLUX DISEASE
     Dates: start: 2016
  9. LOXOPROFEN SODIUM HYDRATE [Concomitant]
     Active Substance: LOXOPROFEN SODIUM DIHYDRATE
     Indication: PAIN
     Dates: start: 2019
  10. SODIUM FERROUS CITRATE [Concomitant]
     Active Substance: SODIUM FERROUS CITRATE
     Indication: ANAEMIA
     Dates: start: 201909
  11. BORIC ACID/INORGANIC SALTS COMBINED DRUG [Concomitant]
     Indication: DRY EYE
     Dates: start: 2018
  12. SODIUM GUALENATE HYDRATE [Concomitant]
     Active Substance: SODIUM GUALENATE MONOHYDRATE
     Indication: ANAEMIA
     Dates: start: 201909
  13. TAKA?DIASTASE/NATURAL AGENTS COMBINED DRUG [Concomitant]
     Indication: DYSPEPSIA
     Dosage: POWDER FORMULATION
     Route: 048
     Dates: start: 20200325
  14. POLAPREZINC [Concomitant]
     Active Substance: POLAPREZINC
     Indication: GASTRITIS PROPHYLAXIS
     Dates: start: 20200531
  15. LIDOCAINE HYDROCHLORIDE. [Concomitant]
     Active Substance: LIDOCAINE HYDROCHLORIDE
     Indication: STOMATITIS
     Dosage: GARGLE
     Dates: start: 20200520
  16. ERIBULIN [Suspect]
     Active Substance: ERIBULIN
     Indication: NEOPLASM
     Route: 042
     Dates: start: 20200311, end: 20200513
  17. TAKECAB [Concomitant]
     Active Substance: VONOPRAZAN FUMARATE
     Indication: GASTRITIS PROPHYLAXIS
     Dates: start: 2016
  18. HACHIAZULE [Concomitant]
     Indication: STOMATITIS
     Dates: start: 20180318
  19. ENTERAL NUTRITION [Concomitant]
     Active Substance: DIETARY SUPPLEMENT
     Indication: NUTRITIONAL SUPPLEMENTATION
     Dosage: LIQUID FORMULATION FOR INTERNAL USE
     Route: 048
     Dates: start: 20200325
  20. ARTIFICIAL TEAR MYTEAR [Concomitant]
     Indication: DRY EYE
     Dates: start: 2018
  21. ENORAS [Concomitant]
     Indication: NUTRITIONAL SUPPLEMENTATION
     Dates: start: 20200325

REACTIONS (2)
  - Decreased appetite [Not Recovered/Not Resolved]
  - Diarrhoea [Recovering/Resolving]

NARRATIVE: CASE EVENT DATE: 20200520
